FAERS Safety Report 5946178-X (Version None)
Quarter: 2008Q4

REPORT INFORMATION
  Report Type: 
  Country: None (occurrence: None)
  Receive Date: 20081106
  Receipt Date: 20081106
  Transmission Date: 20090506
  Serious: Yes (Hospitalization, Other)
  Sender: FDA-Public Use
  Company Number: None

PATIENT
  Age: 12 Year
  Sex: Female
  Weight: 122.4712 kg

DRUGS (1)
  1. ABILIFY [Suspect]
     Indication: BIPOLAR I DISORDER
     Dates: start: 20070526, end: 20081025

REACTIONS (12)
  - ABNORMAL WEIGHT GAIN [None]
  - DEPRESSION [None]
  - DIARRHOEA [None]
  - FAECAL INCONTINENCE [None]
  - HEADACHE [None]
  - INCREASED APPETITE [None]
  - MUSCLE SPASMS [None]
  - SUICIDAL IDEATION [None]
  - SUICIDE ATTEMPT [None]
  - TEMPERATURE REGULATION DISORDER [None]
  - TYPE 2 DIABETES MELLITUS [None]
  - WEIGHT INCREASED [None]
